FAERS Safety Report 6722589-X (Version None)
Quarter: 2010Q2

REPORT INFORMATION
  Report Type: 
  Country: None (occurrence: None)
  Receive Date: 20100512
  Receipt Date: 20100501
  Transmission Date: 20101027
  Serious: Yes (Hospitalization)
  Sender: FDA-Public Use
  Company Number: US-PFIZER INC-2010055032

PATIENT
  Sex: Male
  Weight: 97.052 kg

DRUGS (9)
  1. BLINDED *PLACEBO [Suspect]
     Dosage: 20 MG, 3X/DAY
     Dates: start: 20100128, end: 20100421
  2. SILDENAFIL CITRATE [Suspect]
     Dosage: 20 MG, 3X/DAY
     Dates: start: 20100128, end: 20100421
  3. BLINDED *PLACEBO [Suspect]
     Dosage: 60 MG, 3X/DAY
     Dates: start: 20100422, end: 20100427
  4. SILDENAFIL CITRATE [Suspect]
     Dosage: 60 MG, 3X/DAY
     Dates: start: 20100422, end: 20100427
  5. BLINDED *PLACEBO [Suspect]
     Dosage: 20 MG, 3X/DAY
     Dates: start: 20100503
  6. SILDENAFIL CITRATE [Suspect]
     Dosage: 20 MG, 3X/DAY
     Dates: start: 20100503
  7. WARFARIN [Concomitant]
  8. HYDROCHLOROTHIAZIDE [Concomitant]
  9. FUROSEMIDE [Concomitant]

REACTIONS (1)
  - CARDIAC FAILURE CONGESTIVE [None]
